FAERS Safety Report 7056155-6 (Version None)
Quarter: 2010Q4

REPORT INFORMATION
  Report Type: 
  Country: None (occurrence: None)
  Receive Date: 20101021
  Receipt Date: 20101014
  Transmission Date: 20110411
  Serious: Yes (Hospitalization)
  Sender: FDA-Public Use
  Company Number: DE-TEVA-251893GER

PATIENT
  Sex: Female

DRUGS (25)
  1. CARBOPLATIN [Suspect]
     Indication: NON-SMALL CELL LUNG CANCER METASTATIC
     Route: 042
     Dates: start: 20100722
  2. BLINDED CS-1008 [Suspect]
     Indication: NON-SMALL CELL LUNG CANCER METASTATIC
     Route: 042
     Dates: start: 20100722
  3. SIMVASTATIN [Concomitant]
     Indication: HYPERCHOLESTEROLAEMIA
     Route: 048
     Dates: start: 20000101, end: 20100621
  4. IBUPROFEN [Concomitant]
     Indication: BONE PAIN
     Route: 048
     Dates: start: 20100602
  5. PANTOPRAZOLE SODIUM [Concomitant]
     Indication: PROPHYLAXIS AGAINST GASTROINTESTINAL ULCER
     Route: 048
     Dates: start: 20100603
  6. METAMIZOLE SODIUM [Concomitant]
     Indication: BONE PAIN
     Route: 048
     Dates: start: 20100301, end: 20100715
  7. METAMIZOLE SODIUM [Concomitant]
     Route: 048
     Dates: start: 20100721
  8. TRAMADOL HYDROCHLORIDE [Concomitant]
     Indication: BONE PAIN
     Route: 048
     Dates: start: 20100608, end: 20100615
  9. TRAMADOL HYDROCHLORIDE [Concomitant]
     Route: 048
     Dates: start: 20100616, end: 20100621
  10. ENOXAPARIN SODIUM [Concomitant]
     Indication: THROMBOSIS PROPHYLAXIS
     Route: 058
     Dates: start: 20100601, end: 20100615
  11. ENOXAPARIN SODIUM [Concomitant]
     Route: 058
     Dates: start: 20100621, end: 20100624
  12. ENOXAPARIN SODIUM [Concomitant]
     Route: 058
     Dates: start: 20100714, end: 20100714
  13. ENOXAPARIN SODIUM [Concomitant]
     Route: 058
     Dates: start: 20100721, end: 20100724
  14. ZOLEDRONIC ACID [Concomitant]
     Indication: METASTASES TO BONE
     Route: 042
     Dates: start: 20100614, end: 20100614
  15. ZOLEDRONIC ACID [Concomitant]
     Route: 042
     Dates: start: 20100714, end: 20100714
  16. COLECALCIFEROL [Concomitant]
     Indication: METASTASES TO BONE
     Route: 048
     Dates: start: 20100616
  17. CALCIUM [Concomitant]
     Indication: METASTASES TO BONE
     Route: 048
     Dates: start: 20100616
  18. METOCLOPRAMIDE [Concomitant]
     Indication: PROPHYLAXIS OF NAUSEA AND VOMITING
     Route: 048
     Dates: start: 20100616
  19. NULYTELY [Concomitant]
     Indication: CONSTIPATION
     Route: 048
     Dates: start: 20100621
  20. RINGER'S [Concomitant]
     Indication: VOMITING
     Route: 042
     Dates: start: 20100624, end: 20100624
  21. MORPHINE SULFATE [Concomitant]
     Indication: BONE PAIN
     Route: 048
     Dates: start: 20100622, end: 20100624
  22. MORPHINE SULFATE [Concomitant]
     Route: 048
     Dates: start: 20100722, end: 20100811
  23. PARACETAMOL [Concomitant]
     Indication: MUSCULOSKELETAL CHEST PAIN
     Route: 048
     Dates: start: 20100721
  24. ZOPICLONE [Concomitant]
     Indication: INSOMNIA
     Route: 048
     Dates: start: 20100721, end: 20100723
  25. PACLITAXEL [Suspect]
     Indication: NON-SMALL CELL LUNG CANCER METASTATIC
     Route: 042
     Dates: start: 20100722

REACTIONS (1)
  - FAECALOMA [None]
